FAERS Safety Report 23103207 (Version 1)
Quarter: 2023Q4

REPORT INFORMATION
  Report Type: Spontaneous
  Country: US (occurrence: None)
  Receive Date: 20231022
  Receipt Date: 20231022
  Transmission Date: 20240110
  Serious: Yes (Life-Threatening, Hospitalization)
  Sender: FDA-Public Use
  Company Number: None

PATIENT
  Age: 76 Year
  Sex: Male
  Weight: 49 kg

DRUGS (1)
  1. HYDROMORPHONE HYDROCHLORIDE [Suspect]
     Active Substance: HYDROMORPHONE HYDROCHLORIDE
     Dosage: FREQUENCY : AS NEEDED;?
     Route: 048
     Dates: start: 20230404, end: 20230407

REACTIONS (3)
  - Mental status changes [None]
  - Haemodialysis [None]
  - Intentional self-injury [None]

NARRATIVE: CASE EVENT DATE: 20230407
